FAERS Safety Report 8507995-5 (Version None)
Quarter: 2012Q3

REPORT INFORMATION
  Report Type: 
  Country: None (occurrence: None)
  Receive Date: 20120713
  Receipt Date: 20120702
  Transmission Date: 20120928
  Serious: Yes (Death, Other)
  Sender: FDA-Public Use
  Company Number: JP-MPIJNJ-2012-04492

PATIENT

DRUGS (3)
  1. GLUCOSE [Concomitant]
     Dosage: UNK
     Dates: start: 20120326, end: 20120326
  2. VELCADE [Suspect]
     Indication: MULTIPLE MYELOMA
     Dosage: 1.3 MG/M2, UNK
     Route: 042
     Dates: start: 20120321, end: 20120409
  3. DEXAMETHASONE [Concomitant]
     Indication: MULTIPLE MYELOMA

REACTIONS (4)
  - INTERSTITIAL LUNG DISEASE [None]
  - HYPERKALAEMIA [None]
  - RENAL DISORDER [None]
  - LIVER DISORDER [None]
